FAERS Safety Report 6962892-1 (Version None)
Quarter: 2010Q3

REPORT INFORMATION
  Report Type: 
  Country: None (occurrence: None)
  Receive Date: 20100902
  Receipt Date: 20100823
  Transmission Date: 20110219
  Serious: Yes (Disabling)
  Sender: FDA-Public Use
  Company Number: US-PFIZER INC-2010096076

PATIENT
  Sex: Female
  Weight: 71.2 kg

DRUGS (6)
  1. SUTENT [Suspect]
     Indication: RENAL CELL CARCINOMA
     Dosage: 50 MG DAILY, 4 WEEKS ON, 2 WEEKS OFF
     Route: 048
     Dates: start: 20090901
  2. EFFEXOR [Concomitant]
     Dosage: 75 MG, 1X/DAY
     Dates: start: 20030901
  3. ALLEGRA [Concomitant]
     Dosage: 180 MG, UNK
     Dates: start: 19970101
  4. SYNTHROID [Concomitant]
     Dosage: 50 MG, UNK
     Dates: start: 20091201
  5. CARDIZEM [Concomitant]
     Dosage: 180 MG, UNK
     Dates: start: 20100301
  6. HYDROCHLOROTHIAZIDE [Concomitant]
     Dosage: 25 MG, UNK

REACTIONS (2)
  - BLOOD THYROID STIMULATING HORMONE INCREASED [None]
  - FATIGUE [None]
